FAERS Safety Report 5677060-3 (Version None)
Quarter: 2008Q2

REPORT INFORMATION
  Report Type: 
  Country: None (occurrence: None)
  Receive Date: 20080311
  Receipt Date: 20080130
  Transmission Date: 20081010
  Serious: No
  Sender: FDA-Public Use
  Company Number: 002#2#2007-00234

PATIENT
  Age: 74 Year
  Sex: Female
  Weight: 55.3388 kg

DRUGS (13)
  1. NEUPRO [Suspect]
     Dosage: 4 MG/24H, 1 IN 1 D, TRANSDERMAL
     Route: 062
     Dates: start: 20070815
  2. SINEMET CR [Concomitant]
  3. PARLODEL [Concomitant]
  4. SYMMETREL [Concomitant]
  5. LORAZEPAM [Concomitant]
  6. COLACE [Concomitant]
  7. ZANTAC [Concomitant]
  8. LIDOCAINE [Concomitant]
  9. UNKNOWN BLOOD PRESSURE MEDICATION [Concomitant]
  10. ANTI-OSTEOPOROSIS MEDICATION [Concomitant]
  11. STALEVO 100 [Concomitant]
  12. ELDEPRYL [Concomitant]
  13. DULCOLAX [Concomitant]

REACTIONS (3)
  - APPLICATION SITE ERYTHEMA [None]
  - APPLICATION SITE REACTION [None]
  - RASH ERYTHEMATOUS [None]
